FAERS Safety Report 8799428 (Version 2)
Quarter: 2012Q4

REPORT INFORMATION
  Report Type: 
  Country: CO (occurrence: CO)
  Receive Date: 20120919
  Receipt Date: 20121031
  Transmission Date: 20130627
  Serious: Yes (Death)
  Sender: FDA-Public Use
  Company Number: PHHY2012CO079955

PATIENT
  Sex: Female

DRUGS (9)
  1. SANDOSTATINE [Suspect]
     Indication: NEUROENDOCRINE TUMOUR
     Dosage: 0.1 mg, every 8 hours
     Route: 058
     Dates: start: 20120813, end: 20120820
  2. SANDOSTATIN LAR [Suspect]
     Indication: NEUROENDOCRINE TUMOUR
     Dosage: 30 mg, every 28 days
     Route: 030
     Dates: start: 20120910
  3. SANDOSTATIN LAR [Suspect]
     Dosage: 30 mg, every 28 days
     Route: 030
     Dates: start: 20121010
  4. HEPARIN [Concomitant]
  5. ACETAMINOPHEN [Concomitant]
  6. EUTHYROX [Concomitant]
  7. MEMANTINE [Concomitant]
  8. NOVALGINA [Concomitant]
  9. VIGABATRIN [Concomitant]

REACTIONS (13)
  - Death [Fatal]
  - Hypersomnia [Not Recovered/Not Resolved]
  - Insomnia [Not Recovered/Not Resolved]
  - Abasia [Not Recovered/Not Resolved]
  - Pain [Not Recovered/Not Resolved]
  - Asthenia [Not Recovered/Not Resolved]
  - Somnolence [Unknown]
  - Cough [Unknown]
  - Drowning [Unknown]
  - Mobility decreased [Unknown]
  - White blood cell disorder [Unknown]
  - Decreased appetite [Not Recovered/Not Resolved]
  - Blood glucose abnormal [Unknown]
